FAERS Safety Report 10550911 (Version 3)
Quarter: 2014Q4

REPORT INFORMATION
  Report Type: Spontaneous
  Country: JP (occurrence: JP)
  Receive Date: 20141029
  Receipt Date: 20141210
  Transmission Date: 20150529
  Serious: Yes (Hospitalization, Other)
  Sender: FDA-Public Use
  Company Number: PHHY2014JP108405

PATIENT
  Age: 55 Year
  Sex: Male
  Weight: 95 kg

DRUGS (4)
  1. LUNESTA [Concomitant]
     Active Substance: ESZOPICLONE
     Indication: INSOMNIA
     Dosage: 2 MG, UNK
     Route: 048
     Dates: start: 20140508, end: 20140907
  2. CLOZARIL [Suspect]
     Active Substance: CLOZAPINE
     Indication: SCHIZOPHRENIA
     Dosage: 600 MG, DAILY
     Route: 048
     Dates: start: 20140618, end: 20140907
  3. LUVOX [Concomitant]
     Active Substance: FLUVOXAMINE MALEATE
     Indication: COMPULSIONS
     Dosage: 75 MG, UNK
     Route: 048
     Dates: start: 20140820, end: 20140907
  4. CLOZARIL [Suspect]
     Active Substance: CLOZAPINE
     Dosage: 75 MG, DAILY
     Route: 048
     Dates: start: 20141001

REACTIONS (10)
  - Loss of consciousness [Unknown]
  - Respiratory failure [Unknown]
  - Seizure [Unknown]
  - Right ventricular failure [Recovering/Resolving]
  - Tachycardia [Unknown]
  - Deep vein thrombosis [Recovering/Resolving]
  - Blood pressure decreased [Unknown]
  - Electrocardiogram P wave abnormal [Recovering/Resolving]
  - Snoring [Unknown]
  - Pulmonary embolism [Recovering/Resolving]

NARRATIVE: CASE EVENT DATE: 20140907
